FAERS Safety Report 6331348-1 (Version None)
Quarter: 2009Q3

REPORT INFORMATION
  Report Type: 
  Country: None (occurrence: None)
  Receive Date: 20090827
  Receipt Date: 20090825
  Transmission Date: 20100115
  Serious: Yes (Other)
  Sender: FDA-Public Use
  Company Number: US-B.I. PHARMACEUTICALS,INC./RIDGEFIELD-2009-BP-06522BP

PATIENT
  Age: 90 Year
  Sex: Female

DRUGS (14)
  1. AGGRENOX [Suspect]
     Indication: CEREBROVASCULAR ACCIDENT PROPHYLAXIS
     Route: 048
     Dates: start: 20081101
  2. AGGRENOX [Suspect]
     Indication: TRANSIENT ISCHAEMIC ATTACK
  3. CRESTOR [Concomitant]
     Indication: BLOOD CHOLESTEROL INCREASED
  4. LOVAZA [Concomitant]
  5. MULTI-VITAMIN [Concomitant]
  6. LISINOPRIL [Concomitant]
     Indication: HYPERTENSION
  7. PRILOSEC [Concomitant]
     Dosage: 40 MG
  8. AMLODIPINE [Concomitant]
  9. BONIVA [Concomitant]
  10. CARDIO-TABS [Concomitant]
  11. I-CAPS [Concomitant]
  12. CO Q-10 [Concomitant]
  13. CITRACAL WITH D [Concomitant]
  14. VITAMIN D [Concomitant]

REACTIONS (1)
  - OVARIAN CANCER [None]
